FAERS Safety Report 16042161 (Version 1)
Quarter: 2019Q1

REPORT INFORMATION
  Report Type: Spontaneous
  Country: US (occurrence: US)
  Receive Date: 20190306
  Receipt Date: 20190306
  Transmission Date: 20190418
  Serious: No
  Sender: FDA-Public Use
  Company Number: US-AKORN PHARMACEUTICALS-2018AKN00501

PATIENT
  Age: 41 Year
  Sex: Female
  Weight: 61.68 kg

DRUGS (3)
  1. PROPRANOLOL [Concomitant]
     Active Substance: PROPRANOLOL HYDROCHLORIDE
  2. MYORISAN [Suspect]
     Active Substance: ISOTRETINOIN
     Indication: ACNE
     Dosage: 40 MG, 1X/DAY
     Dates: start: 20180205, end: 20180305
  3. UNSPECIFIED ORAL BIRTH CONTROL [Concomitant]

REACTIONS (6)
  - Vomiting [Unknown]
  - Feeling abnormal [Unknown]
  - Dermatitis [Unknown]
  - Headache [Unknown]
  - Nausea [Unknown]
  - Off label use [Recovered/Resolved]

NARRATIVE: CASE EVENT DATE: 2018
